FAERS Safety Report 7240417-3 (Version None)
Quarter: 2011Q1

REPORT INFORMATION
  Report Type: 
  Country: None (occurrence: None)
  Receive Date: 20110118
  Receipt Date: 20110104
  Transmission Date: 20110831
  Serious: Yes (Hospitalization)
  Sender: FDA-Public Use
  Company Number: 2010AL000141

PATIENT
  Age: 50 Year
  Sex: Male
  Weight: 84 kg

DRUGS (15)
  1. DOCUSATE SODIUM [Concomitant]
  2. DIPHENOXYLATE [Concomitant]
  3. FOLIC ACID [Concomitant]
  4. RANITIDINE [Concomitant]
  5. SIMETHICONE [Concomitant]
  6. PRALATREXATE (PRALATREXATE) [Suspect]
     Indication: NON-HODGKIN'S LYMPHOMA
     Dosage: 30 MG/M**2;QOW;IV
     Route: 042
     Dates: start: 20101119, end: 20101203
  7. MAGNESIUM [Concomitant]
  8. PROCHLORPERAZINE [Concomitant]
  9. ACETAMINOPHEN [Concomitant]
  10. ZOLPIDEM [Concomitant]
  11. LORAZEPAM [Concomitant]
  12. PREV MEDS [Concomitant]
  13. OXYCODONE HCL [Concomitant]
  14. LOPERAMIDE [Concomitant]
  15. ONDANSETRON [Concomitant]

REACTIONS (14)
  - FAILURE TO THRIVE [None]
  - HYPOMAGNESAEMIA [None]
  - COUGH [None]
  - WHITE BLOOD CELL COUNT DECREASED [None]
  - RED BLOOD CELL COUNT DECREASED [None]
  - HYPERCALCAEMIA [None]
  - PLEURAL EFFUSION [None]
  - CONFUSIONAL STATE [None]
  - HAEMOGLOBIN DECREASED [None]
  - BLOOD CREATININE INCREASED [None]
  - NEOPLASM MALIGNANT [None]
  - HAEMATOCRIT DECREASED [None]
  - B-CELL LYMPHOMA [None]
  - NEUTROPHIL COUNT DECREASED [None]
